FAERS Safety Report 19949623 (Version 1)
Quarter: 2021Q4

REPORT INFORMATION
  Report Type: Spontaneous
  Country: US (occurrence: US)
  Receive Date: 20211012
  Receipt Date: 20211012
  Transmission Date: 20220303
  Serious: Yes (Hospitalization)
  Sender: FDA-Public Use
  Company Number: None

PATIENT
  Age: 63 Year
  Sex: Female

DRUGS (1)
  1. ENBREL [Suspect]
     Active Substance: ETANERCEPT
     Indication: Psoriatic arthropathy
     Dosage: ?          OTHER FREQUENCY:QWEEK;
     Route: 058
     Dates: start: 20210414

REACTIONS (3)
  - Ankle operation [None]
  - Therapy interrupted [None]
  - Psoriatic arthropathy [None]

NARRATIVE: CASE EVENT DATE: 20211008
